FAERS Safety Report 4939957-9 (Version None)
Quarter: 2006Q1

REPORT INFORMATION
  Report Type: 
  Country: None (occurrence: None)
  Receive Date: 20060310
  Receipt Date: 20050909
  Transmission Date: 20060701
  Serious: Yes (Other)
  Sender: FDA-Public Use
  Company Number: US-AMGEN-US150093

PATIENT
  Sex: Male
  Weight: 69.2 kg

DRUGS (2)
  1. ENBREL [Suspect]
     Indication: RHEUMATOID ARTHRITIS
     Route: 058
     Dates: start: 19990415, end: 20030923
  2. METHOTREXATE [Suspect]
     Dates: start: 19980319, end: 20030923

REACTIONS (12)
  - ASTHENIA [None]
  - BLADDER NEOPLASM [None]
  - DIFFUSE LARGE B-CELL LYMPHOMA [None]
  - DYSAESTHESIA [None]
  - DYSGEUSIA [None]
  - FATIGUE [None]
  - HAEMATURIA [None]
  - LUNG CONSOLIDATION [None]
  - LUNG NEOPLASM [None]
  - LYMPHADENOPATHY [None]
  - PLEURAL EFFUSION [None]
  - RENAL CYST [None]
